FAERS Safety Report 5814605-4 (Version None)
Quarter: 2008Q3

REPORT INFORMATION
  Report Type: 
  Country: None (occurrence: None)
  Receive Date: 20080718
  Receipt Date: 20071115
  Transmission Date: 20090109
  Serious: No
  Sender: FDA-Public Use
  Company Number: US-KINGPHARMUSA00001-K200701472

PATIENT

DRUGS (6)
  1. LEVOXYL [Suspect]
     Indication: AUTOIMMUNE THYROIDITIS
     Dosage: UNK MCG, QD
     Route: 048
  2. SYNTHROID [Suspect]
     Indication: AUTOIMMUNE THYROIDITIS
     Dosage: UNK, QD
     Route: 048
     Dates: end: 20040101
  3. ATENOLOL [Concomitant]
  4. METFORMIN HCL [Concomitant]
     Indication: DIABETES MELLITUS
     Dosage: 500 MG, BID
     Route: 048
  5. LISINOPRIL [Concomitant]
     Dosage: 20 MG, QD
     Route: 048
  6. ASPIRIN [Concomitant]
     Dosage: 81 MG, QD
     Route: 048

REACTIONS (4)
  - BLOOD THYROID STIMULATING HORMONE ABNORMAL [None]
  - PHOTOPSIA [None]
  - THYROID DISORDER [None]
  - VISUAL FIELD DEFECT [None]
